FAERS Safety Report 17653809 (Version 1)
Quarter: 2020Q2

REPORT INFORMATION
  Report Type: Spontaneous
  Country: DE (occurrence: DE)
  Receive Date: 20200409
  Receipt Date: 20200409
  Transmission Date: 20200713
  Serious: Yes (Other)
  Sender: FDA-Public Use
  Company Number: DE-AUROBINDO-AUR-APL-2020-017327

PATIENT
  Age: 68 Year
  Sex: Male
  Weight: 70 kg

DRUGS (1)
  1. AMIODARONE [Suspect]
     Active Substance: AMIODARONE
     Indication: ATRIAL FIBRILLATION
     Dosage: 300 MILLIGRAM, ONCE A DAY (1-0-0)
     Route: 048
     Dates: start: 20191126, end: 20200227

REACTIONS (3)
  - Urticaria [Not Recovered/Not Resolved]
  - Hypoxia [Not Recovered/Not Resolved]
  - Angioedema [Not Recovered/Not Resolved]

NARRATIVE: CASE EVENT DATE: 20200218
